FAERS Safety Report 7162672-0 (Version None)
Quarter: 2010Q4

REPORT INFORMATION
  Report Type: 
  Country: None (occurrence: None)
  Receive Date: 20101215
  Receipt Date: 20091208
  Transmission Date: 20110411
  Serious: Yes (Life-Threatening)
  Sender: FDA-Public Use
  Company Number: BR-PFIZER INC-2009307196

PATIENT
  Age: 79 Year
  Sex: Female
  Weight: 47 kg

DRUGS (3)
  1. LYRICA [Suspect]
     Indication: FORMICATION
     Dosage: 75 MG, 2X/DAY
     Route: 048
     Dates: start: 20091130, end: 20091204
  2. LYRICA [Suspect]
     Indication: HYPOAESTHESIA
  3. GINKGO BILOBA [Concomitant]
     Dosage: UNK

REACTIONS (7)
  - COUGH [None]
  - DYSPHONIA [None]
  - DYSPNOEA [None]
  - HEARING IMPAIRED [None]
  - HEART RATE INCREASED [None]
  - HYPERHIDROSIS [None]
  - OROPHARYNGEAL PAIN [None]
